FAERS Safety Report 20469036 (Version 5)
Quarter: 2022Q3

REPORT INFORMATION
  Report Type: Spontaneous
  Country: JP (occurrence: JP)
  Receive Date: 20220214
  Receipt Date: 20220714
  Transmission Date: 20221027
  Serious: Yes (Other)
  Sender: FDA-Public Use
  Company Number: JP-GSKNCCC-Case-01417915_AE-54679

PATIENT

DRUGS (14)
  1. SOTROVIMAB [Suspect]
     Active Substance: SOTROVIMAB
     Dosage: 500 MG/100 ML/30 MIN
     Dates: start: 20220206, end: 20220206
  2. OLANZAPINE [Concomitant]
     Active Substance: OLANZAPINE
     Dosage: 2 G, QD, AFTER DINNER
  3. MAGNESIUM OXIDE BULK POWDER [Concomitant]
     Dosage: 2 G, BID, AFTER BREAKFAST AND DINNER
  4. DAIOUKANZOUTOU [Concomitant]
     Dosage: 1 SACHET, TID, BEFORE EACH MEAL
  5. VALPROATE SODIUM [Concomitant]
     Active Substance: VALPROATE SODIUM
     Dosage: 0.5 G, QID, AFTER EACH MEAL, BEFORE SLEEP
  6. BIPERIDEN HYDROCHLORIDE [Concomitant]
     Active Substance: BIPERIDEN HYDROCHLORIDE
     Dosage: 0.2 G, TID, AFTER EACH MEAL
  7. FLUNITRAZEPAM [Concomitant]
     Active Substance: FLUNITRAZEPAM
     Dosage: 2 MG, QD, BEFORE SLEEP
  8. BENZALIN TABLETS [Concomitant]
     Dosage: 10 MG, QD, BEFORE SLEEP
  9. BELSOMRA [Concomitant]
     Active Substance: SUVOREXANT
     Dosage: 20 MG, QD, BEFORE SLEEP
  10. LEVOMEPROMAZINE [Concomitant]
     Active Substance: LEVOMEPROMAZINE
     Dosage: 1/3 G, AFTER EACH MEAL, 1.5 G, BEFORE SLEEP, QID
  11. CARBAMAZEPINE [Concomitant]
     Active Substance: CARBAMAZEPINE
     Dosage: 0.2 G, TID, AFTER EACH MEAL
  12. PURSENNID TABLETS [Concomitant]
     Dosage: 12 MG, QD, BEFORE SLEEP
  13. ISOTONIC SODIUM CHLORIDE SOLUTION [Concomitant]
     Active Substance: SODIUM CHLORIDE
     Dosage: 100 ML
     Dates: start: 20220206, end: 20220206
  14. SOLDEM 3A [Concomitant]
     Active Substance: CARBOHYDRATES\POTASSIUM CHLORIDE\SODIUM CHLORIDE\SODIUM LACTATE
     Dosage: 500 ML
     Dates: start: 20220210, end: 20220210

REACTIONS (2)
  - Hypothermia [Recovered/Resolved]
  - Infusion related reaction [Recovered/Resolved]

NARRATIVE: CASE EVENT DATE: 20220201
